FAERS Safety Report 18481424 (Version 1)
Quarter: 2020Q4

REPORT INFORMATION
  Report Type: Report from Study
  Country: US (occurrence: US)
  Receive Date: 20201109
  Receipt Date: 20201109
  Transmission Date: 20210114
  Serious: Yes (Hospitalization)
  Sender: FDA-Public Use
  Company Number: US-JNJFOC-20201114923

PATIENT
  Age: 40 Year
  Sex: Male
  Weight: 112 kg

DRUGS (4)
  1. ESKETAMINE [Suspect]
     Active Substance: ESKETAMINE
     Dates: start: 20170711
  2. ESKETAMINE [Suspect]
     Active Substance: ESKETAMINE
     Dates: start: 20170713, end: 20170803
  3. ESKETAMINE [Suspect]
     Active Substance: ESKETAMINE
     Dates: start: 20170808
  4. ESKETAMINE [Suspect]
     Active Substance: ESKETAMINE
     Indication: DEPRESSION
     Dates: start: 20200923, end: 20200923

REACTIONS (1)
  - Suicidal ideation [Recovered/Resolved]

NARRATIVE: CASE EVENT DATE: 20200930
